FAERS Safety Report 7782840-4 (Version None)
Quarter: 2011Q3

REPORT INFORMATION
  Report Type: 
  Country: None (occurrence: None)
  Receive Date: 20110927
  Receipt Date: 20110927
  Transmission Date: 20111222
  Serious: Yes (Other)
  Sender: FDA-Public Use
  Company Number: None

PATIENT
  Age: 82 Year
  Sex: Male

DRUGS (1)
  1. DABIGATRAN [Suspect]
     Dosage: 150 MG BID PO
     Route: 048
     Dates: start: 20110510, end: 20110525

REACTIONS (4)
  - HYPOTENSION [None]
  - ANAEMIA [None]
  - AUTOPSY [None]
  - AORTIC RUPTURE [None]
